FAERS Safety Report 6379805-6 (Version None)
Quarter: 2009Q3

REPORT INFORMATION
  Report Type: 
  Country: None (occurrence: None)
  Receive Date: 20090924
  Receipt Date: 20090924
  Transmission Date: 20100115
  Serious: Yes (Hospitalization, Other)
  Sender: FDA-Public Use
  Company Number: None

PATIENT
  Age: 20 Year
  Sex: Female
  Weight: 54.4316 kg

DRUGS (2)
  1. RISPERDAL [Suspect]
     Indication: BIPOLAR I DISORDER
     Dosage: .5 MG DAY PO
     Route: 048
     Dates: start: 20080320, end: 20080501
  2. GEODON [Suspect]
     Indication: BIPOLAR I DISORDER
     Dosage: 2.5 MG DAY PO
     Route: 048
     Dates: start: 20090320, end: 20090325

REACTIONS (20)
  - ANGER [None]
  - BLOOD PROLACTIN INCREASED [None]
  - COMMUNICATION DISORDER [None]
  - CRYING [None]
  - DISSOCIATION [None]
  - DIZZINESS [None]
  - FLAT AFFECT [None]
  - FORMICATION [None]
  - HEADACHE [None]
  - INSOMNIA [None]
  - MENTAL DISORDER [None]
  - MOOD SWINGS [None]
  - MUSCLE SPASMS [None]
  - MUSCLE TWITCHING [None]
  - MUSCULOSKELETAL STIFFNESS [None]
  - NECK PAIN [None]
  - PAIN [None]
  - PANIC ATTACK [None]
  - PITUITARY TUMOUR BENIGN [None]
  - SOCIAL PHOBIA [None]
